FAERS Safety Report 5190543-8 (Version None)
Quarter: 2006Q4

REPORT INFORMATION
  Report Type: 
  Country: None (occurrence: None)
  Receive Date: 20061222
  Receipt Date: 20060804
  Transmission Date: 20070319
  Serious: Yes (Hospitalization, Other)
  Sender: FDA-Public Use
  Company Number: US-ELI_LILLY_AND_COMPANY-US200608003801

PATIENT
  Age: 40 Year
  Sex: Female
  Weight: 99.773 kg

DRUGS (5)
  1. ZYPREXA [Suspect]
     Dosage: 10 MG, UNK
     Dates: start: 20000701, end: 20030401
  2. ZYPREXA [Suspect]
     Dosage: 7.5 MG, UNK
     Dates: start: 20030501, end: 20031201
  3. ZYPREXA [Suspect]
     Dosage: 5 MG, UNK
     Dates: start: 20040101, end: 20040401
  4. ARIPIPRAZOLE [Concomitant]
     Dates: start: 20040401
  5. RISPERIDONE [Concomitant]
     Dates: start: 20000201

REACTIONS (6)
  - DIABETES MELLITUS [None]
  - DIABETIC COMA [None]
  - DIABETIC KETOACIDOSIS [None]
  - HYPERGLYCAEMIA [None]
  - OBESITY [None]
  - PANCREATITIS [None]
